FAERS Safety Report 5281025-3 (Version None)
Quarter: 2007Q1

REPORT INFORMATION
  Report Type: 
  Country: None (occurrence: None)
  Receive Date: 20061229
  Receipt Date: 20060814
  Transmission Date: 20070707
  Serious: Yes (Other)
  Sender: FDA-Public Use
  Company Number: 2006UW16183

PATIENT
  Age: 71 Year
  Sex: Male
  Weight: 86.182 kg

DRUGS (2)
  1. CRESTOR [Suspect]
     Dosage: 10 MG DAILY PO
     Route: 048
     Dates: start: 20060201
  2. HEART PILLS [Concomitant]

REACTIONS (3)
  - COORDINATION ABNORMAL [None]
  - GAIT DISTURBANCE [None]
  - MUSCLE ATROPHY [None]
